FAERS Safety Report 4508405-5 (Version None)
Quarter: 2004Q4

REPORT INFORMATION
  Report Type: 
  Country: None (occurrence: None)
  Receive Date: 20041118
  Receipt Date: 20041108
  Transmission Date: 20050328
  Serious: Yes (Hospitalization)
  Sender: FDA-Public Use
  Company Number: 2004-08-1162

PATIENT
  Age: 63 Year
  Sex: Male
  Weight: 64 kg

DRUGS (5)
  1. REBETOL [Suspect]
     Indication: HEPATITIS C
     Dosage: 800 MG ORAL
     Route: 048
     Dates: start: 20020905, end: 20021008
  2. INTRON A [Suspect]
     Indication: HEPATITIS C
     Dosage: 6 MU INTRAMUSCULAR
     Route: 030
     Dates: start: 20020905, end: 20021008
  3. FERON INJECTABLE POWDER [Suspect]
     Dates: start: 20021010, end: 20021010
  4. INDACIN SUPPOSITORIES [Concomitant]
  5. DEPAS [Concomitant]

REACTIONS (10)
  - ASTHENIA [None]
  - BLOOD CREATINE PHOSPHOKINASE INCREASED [None]
  - CONDITION AGGRAVATED [None]
  - HEPATIC FUNCTION ABNORMAL [None]
  - INSOMNIA [None]
  - MUSCLE ATROPHY [None]
  - MUSCLE ENZYME INCREASED [None]
  - MYOSITIS [None]
  - PANCYTOPENIA [None]
  - WALKING AID USER [None]
